FAERS Safety Report 6227302-0 (Version None)
Quarter: 2009Q2

REPORT INFORMATION
  Report Type: 
  Country: None (occurrence: None)
  Receive Date: 20090610
  Receipt Date: 20090527
  Transmission Date: 20091009
  Serious: Yes (Hospitalization)
  Sender: FDA-Public Use
  Company Number: TCI2008A03887

PATIENT
  Age: 75 Year
  Sex: Female

DRUGS (4)
  1. ACTOS [Suspect]
     Indication: DIABETES MELLITUS
     Dosage: 30 MG (30 MG, 1 IN 1 D) PER ORAL
     Route: 048
     Dates: start: 20080610, end: 20080610
  2. STRONG NEO-MINOPHAGEN C (CYSTEINE, AMINOACETIC ACID, GLYCYRRHIZIC ACID [Concomitant]
  3. URSO (URSODEOXYCHOLIC ACID) [Concomitant]
  4. ALDACTONE [Concomitant]

REACTIONS (6)
  - DEEP VEIN THROMBOSIS [None]
  - DIZZINESS [None]
  - ERYTHEMA [None]
  - LYMPHOEDEMA [None]
  - OEDEMA PERIPHERAL [None]
  - PAIN [None]
